FAERS Safety Report 5841995-9 (Version None)
Quarter: 2008Q3

REPORT INFORMATION
  Report Type: 
  Country: None (occurrence: None)
  Receive Date: 20080812
  Receipt Date: 20080806
  Transmission Date: 20090109
  Serious: Yes (Life-Threatening, Hospitalization, Other)
  Sender: FDA-Public Use
  Company Number: US-MERCK-0808USA01397

PATIENT
  Age: 59 Year
  Sex: Male

DRUGS (7)
  1. VYTORIN [Suspect]
     Indication: DYSLIPIDAEMIA
     Route: 048
     Dates: start: 20070101, end: 20080806
  2. PLAVIX [Concomitant]
     Route: 065
  3. BENAZEPRIL HYDROCHLORIDE [Concomitant]
     Route: 065
  4. NORVASC [Concomitant]
     Route: 065
  5. RANITIDINE [Concomitant]
     Route: 065
  6. ATENOLOL [Concomitant]
     Route: 065
  7. FENOFIBRATE [Concomitant]
     Route: 065

REACTIONS (1)
  - MYOCARDIAL INFARCTION [None]
